FAERS Safety Report 7974815-7 (Version None)
Quarter: 2011Q4

REPORT INFORMATION
  Report Type: 
  Country: None (occurrence: None)
  Receive Date: 20111213
  Receipt Date: 20111204
  Transmission Date: 20120403
  Serious: Yes (Hospitalization)
  Sender: FDA-Public Use
  Company Number: FR-ASTRAZENECA-2011SE74192

PATIENT
  Age: 21 Year
  Sex: Male

DRUGS (4)
  1. ZOLMITRIPTAN [Suspect]
     Indication: MIGRAINE
     Route: 048
     Dates: start: 20110901, end: 20111128
  2. ZOLMITRIPTAN [Suspect]
     Dosage: SEVERAL FASTEMLTS OF ZOMIG-ZMT
     Route: 048
     Dates: start: 20111126, end: 20111128
  3. URBANYL [Suspect]
     Route: 065
  4. TEGRETOL [Suspect]
     Route: 065

REACTIONS (3)
  - CONFUSIONAL STATE [None]
  - DELIRIUM [None]
  - AGITATION [None]
